APPROVED DRUG PRODUCT: METYROSINE
Active Ingredient: METYROSINE
Strength: 250MG
Dosage Form/Route: CAPSULE;ORAL
Application: A213734 | Product #001 | TE Code: AB
Applicant: AMNEAL EU LTD
Approved: Jul 24, 2020 | RLD: No | RS: No | Type: RX